FAERS Safety Report 6550426-5 (Version None)
Quarter: 2010Q1

REPORT INFORMATION
  Report Type: 
  Country: None (occurrence: None)
  Receive Date: 20100125
  Receipt Date: 20100115
  Transmission Date: 20100710
  Serious: Yes (Life-Threatening, Hospitalization, Other)
  Sender: FDA-Public Use
  Company Number: US-SANOFI-AVENTIS-2010SA000953

PATIENT
  Age: 57 Year
  Sex: Female
  Weight: 69.2 kg

DRUGS (39)
  1. PLAVIX [Suspect]
     Indication: PERCUTANEOUS CORONARY INTERVENTION
     Dosage: 4 CAPSULES, PRE PROCEEDURE, ONCE
     Route: 048
     Dates: start: 20071218, end: 20071218
  2. PLACEBO [Suspect]
     Indication: PERCUTANEOUS CORONARY INTERVENTION
     Dosage: INFUSION OF 75.04 ML FROM 13:56 TO 15:48
     Route: 041
     Dates: start: 20071218, end: 20071218
  3. PLACEBO [Suspect]
     Dosage: 5 ML BOLUS AT 13:52
     Route: 040
     Dates: start: 20071218, end: 20071218
  4. VERSED [Suspect]
     Indication: SEDATION
     Route: 042
     Dates: start: 20071218, end: 20071218
  5. VERSED [Suspect]
     Route: 042
     Dates: start: 20071218, end: 20071218
  6. VERSED [Suspect]
     Route: 042
     Dates: start: 20071218, end: 20071218
  7. VERSED [Suspect]
     Route: 042
     Dates: start: 20071218, end: 20071218
  8. FENTANYL [Suspect]
     Indication: SEDATION
     Route: 042
     Dates: start: 20071218, end: 20071218
  9. FENTANYL [Suspect]
     Indication: PAIN
     Route: 042
     Dates: start: 20071218, end: 20071218
  10. FENTANYL [Suspect]
     Route: 042
     Dates: start: 20071218, end: 20071218
  11. FENTANYL [Suspect]
     Route: 042
     Dates: start: 20071218, end: 20071218
  12. FENTANYL [Suspect]
     Route: 042
     Dates: start: 20071218, end: 20071218
  13. FENTANYL [Suspect]
     Route: 042
     Dates: start: 20071218, end: 20071218
  14. FENTANYL [Suspect]
     Route: 042
     Dates: start: 20071218, end: 20071218
  15. FENTANYL [Suspect]
     Route: 042
     Dates: start: 20071218, end: 20071218
  16. PROPOFOL [Concomitant]
     Dates: start: 20071218, end: 20071218
  17. BIVALIRUDIN [Concomitant]
     Dates: start: 20071218, end: 20071218
  18. BIVALIRUDIN [Concomitant]
     Dates: start: 20071218, end: 20071218
  19. BIVALIRUDIN [Concomitant]
     Dates: start: 20071218, end: 20071218
  20. BIVALIRUDIN [Concomitant]
     Dates: start: 20071218, end: 20071218
  21. ABCIXIMAB [Concomitant]
     Dates: start: 20071218, end: 20071218
  22. ABCIXIMAB [Concomitant]
     Dates: start: 20071218, end: 20071218
  23. ENOXAPARIN SODIUM [Concomitant]
     Dates: start: 20071217, end: 20071217
  24. HEPARIN [Concomitant]
     Dates: start: 20071218, end: 20071218
  25. HEPARIN [Concomitant]
     Dates: start: 20071218, end: 20071218
  26. HEPARIN [Concomitant]
     Dates: start: 20071218, end: 20071218
  27. GLYCERYL TRINITRATE [Concomitant]
     Dates: start: 20071217, end: 20071218
  28. GLYCERYL TRINITRATE [Concomitant]
     Dates: start: 20071217, end: 20071218
  29. GLYCERYL TRINITRATE [Concomitant]
     Dates: start: 20071217, end: 20071218
  30. GLYCERYL TRINITRATE [Concomitant]
     Dates: start: 20071217, end: 20071218
  31. GLYCERYL TRINITRATE [Concomitant]
     Dates: start: 20071217
  32. GLYCERYL TRINITRATE [Concomitant]
     Dates: start: 20071217
  33. GLYCERYL TRINITRATE [Concomitant]
     Dates: start: 20071217
  34. ASPIRIN [Concomitant]
     Dates: start: 20071218, end: 20071218
  35. XYLOCAINE [Concomitant]
     Dates: start: 20071218, end: 20071218
  36. XYLOCAINE [Concomitant]
     Dates: start: 20071218, end: 20071218
  37. XYLOCAINE [Concomitant]
     Dates: start: 20071218, end: 20071218
  38. XYLOCAINE [Concomitant]
     Dates: start: 20071218, end: 20071218
  39. HEPARIN-FRACTION [Concomitant]

REACTIONS (4)
  - HAEMORRHAGIC ANAEMIA [None]
  - HYPOTENSION [None]
  - PERIPHERAL ISCHAEMIA [None]
  - RESPIRATORY FAILURE [None]
